FAERS Safety Report 9218260 (Version 2)
Quarter: 2013Q2

REPORT INFORMATION
  Report Type: Report from Study
  Country: DE (occurrence: DE)
  Receive Date: 20130409
  Receipt Date: 20130425
  Transmission Date: 20140414
  Serious: Yes (Hospitalization)
  Sender: FDA-Public Use
  Company Number: DE-BRISTOL-MYERS SQUIBB COMPANY-17426560

PATIENT
  Age: 60 Year
  Sex: Female
  Weight: 92.5 kg

DRUGS (3)
  1. CARBOPLATIN [Suspect]
     Indication: OVARIAN CANCER
     Dosage: LAST DOSE RIOR TO SAE:21JAN13,18MAR13
     Route: 042
     Dates: start: 20121217
  2. PACLITAXEL [Suspect]
     Indication: OVARIAN CANCER
     Dosage: LAST DOE:21JAN13,18MAR13
     Route: 042
     Dates: start: 20121217
  3. BEVACIZUMAB [Suspect]
     Indication: OVARIAN CANCER
     Dosage: LAST DOSE:28JAN13,?18MAR13-ONG
     Route: 042
     Dates: start: 20121217

REACTIONS (3)
  - Febrile neutropenia [Recovered/Resolved]
  - Dyspnoea [Unknown]
  - Infection [Recovered/Resolved]
